FAERS Safety Report 11982560 (Version 1)
Quarter: 2016Q1

REPORT INFORMATION
  Report Type: Spontaneous
  Country: US (occurrence: None)
  Receive Date: 20160129
  Receipt Date: 20160129
  Transmission Date: 20160526
  Serious: Yes (Hospitalization)
  Sender: FDA-Public Use
  Company Number: None

PATIENT
  Age: 64 Year
  Sex: Male
  Weight: 97.5 kg

DRUGS (7)
  1. LIPITOR [Concomitant]
     Active Substance: ATORVASTATIN CALCIUM
  2. TECFIDERA [Concomitant]
     Active Substance: DIMETHYL FUMARATE
  3. IRBESARTAN. [Concomitant]
     Active Substance: IRBESARTAN
  4. PIOGLITAZONE (ACTOS) [Concomitant]
  5. GLIPIZIDE. [Concomitant]
     Active Substance: GLIPIZIDE
  6. TECFIDERA [Suspect]
     Active Substance: DIMETHYL FUMARATE
     Indication: RELAPSING-REMITTING MULTIPLE SCLEROSIS
     Route: 048
     Dates: start: 20150901, end: 20151226
  7. METFORMIN (GLUCOPHAGE) [Concomitant]

REACTIONS (2)
  - Pneumonia [None]
  - Multiple sclerosis relapse [None]

NARRATIVE: CASE EVENT DATE: 20151226
